FAERS Safety Report 4362705-0 (Version None)
Quarter: 2004Q2

REPORT INFORMATION
  Report Type: 
  Country: None (occurrence: None)
  Receive Date: 20040518
  Receipt Date: 20040503
  Transmission Date: 20050107
  Serious: Yes (Life-Threatening, Hospitalization)
  Sender: FDA-Public Use
  Company Number: 2004-BP-03150BP

PATIENT
  Age: 74 Year
  Sex: Female
  Weight: 59 kg

DRUGS (12)
  1. CATAPRES-TTS-3 [Suspect]
     Indication: HYPERTENSION
     Dosage: 0.1 MG (2.5 MG, 1 PATCH Q WEEK), TO
     Dates: start: 20031001
  2. LASIX [Concomitant]
  3. COUMADIN [Concomitant]
  4. ATACAND [Concomitant]
  5. AMIODARONE HCL [Concomitant]
  6. COMBIVENT [Concomitant]
  7. ALBUTEROL [Concomitant]
  8. NIFEREX (POLYSACCHARIDE-IRON COMPLEX) [Concomitant]
  9. CENTRUM (CENTRUM) [Concomitant]
  10. NITRO-DUR [Concomitant]
  11. ACETYLSALICYLIC ACID SRT [Concomitant]
  12. PREVACID [Concomitant]

REACTIONS (2)
  - BLOOD PRESSURE INCREASED [None]
  - HEADACHE [None]
